FAERS Safety Report 19437656 (Version 1)
Quarter: 2021Q2

REPORT INFORMATION
  Report Type: Spontaneous
  Country: DE (occurrence: DE)
  Receive Date: 20210618
  Receipt Date: 20210618
  Transmission Date: 20210717
  Serious: Yes (Hospitalization)
  Sender: FDA-Public Use
  Company Number: DE-ASTRAZENECA-2021A541010

PATIENT
  Age: 63 Year
  Sex: Female

DRUGS (13)
  1. PULMICORT TURBUHALER [Suspect]
     Active Substance: BUDESONIDE
     Route: 055
  2. BUDESONIDE/INDACATEROL [Concomitant]
     Dosage: 85/43 MCG DAILY
  3. IPRATROPIUM BROMIDE/FENOTEROL [Concomitant]
     Dosage: 20/50 UG DOSING AEROSOL 2 DOSAGES WHEN NEEDED
  4. BERODUAL [Concomitant]
     Active Substance: FENOTEROL HYDROBROMIDE\IPRATROPIUM BROMIDE
     Dosage: 0.02/0.05 MG 1?2 DOSAGED IF REQUIRED
  5. DELIX [Concomitant]
     Dosage: 0/5?0?0.5?0
  6. ULTIBRO BREEZHALER [Concomitant]
     Active Substance: GLYCOPYRRONIUM\INDACATEROL
     Dosage: 85/43MCG
  7. AMOXI CLAVULANE [Concomitant]
     Dosage: 875/125 MG 1?0?1?1
     Dates: end: 20200808
  8. DAXAS [Suspect]
     Active Substance: ROFLUMILAST
     Route: 048
  9. DELIX [Concomitant]
  10. NOVOPULMON [Concomitant]
     Active Substance: BUDESONIDE
  11. SALBUTAMOL [Concomitant]
     Active Substance: ALBUTEROL
  12. PANTOZOL [Concomitant]
     Active Substance: PANTOPRAZOLE SODIUM
  13. ULTIBRO BREEZHALER [Concomitant]
     Active Substance: GLYCOPYRRONIUM\INDACATEROL
     Dosage: 110/50UG INHALATION CAPSULE, DAILY

REACTIONS (1)
  - Chronic obstructive pulmonary disease [Unknown]

NARRATIVE: CASE EVENT DATE: 201911
